FAERS Safety Report 5413511-7 (Version None)
Quarter: 2007Q3

REPORT INFORMATION
  Report Type: 
  Country: None (occurrence: None)
  Receive Date: 20070814
  Receipt Date: 20070801
  Transmission Date: 20080115
  Serious: Yes (Hospitalization)
  Sender: FDA-Public Use
  Company Number: FR-AVENTIS-200712477FR

PATIENT
  Age: 34 Year
  Sex: Female

DRUGS (7)
  1. ARAVA [Suspect]
     Route: 048
  2. CHOLESTYRAMINE [Suspect]
     Route: 048
  3. PREDNISONE TAB [Concomitant]
     Route: 048
  4. NICARDIPINE HYDROCHLORIDE [Concomitant]
     Indication: HYPERTENSION
  5. ACETAMINOPHEN W/ PROPOXYPHENE HCL [Concomitant]
     Route: 048
  6. CANDESARTAN CILEXETIL [Concomitant]
  7. CALCIUM CARBONATE-COLECALCIFEROL [Concomitant]

REACTIONS (11)
  - ALANINE AMINOTRANSFERASE INCREASED [None]
  - ASPARTATE AMINOTRANSFERASE INCREASED [None]
  - BLOOD ALKALINE PHOSPHATASE INCREASED [None]
  - COAGULATION FACTOR VII LEVEL DECREASED [None]
  - GAMMA-GLUTAMYLTRANSFERASE INCREASED [None]
  - HEPATITIS [None]
  - JAUNDICE [None]
  - MEDICATION ERROR [None]
  - PROTHROMBIN LEVEL DECREASED [None]
  - PROTHROMBIN TIME SHORTENED [None]
  - VITAMIN K DEFICIENCY [None]
